FAERS Safety Report 10032992 (Version 2)
Quarter: 2014Q2

REPORT INFORMATION
  Report Type: Spontaneous
  Country: US (occurrence: US)
  Receive Date: 20140324
  Receipt Date: 20140520
  Transmission Date: 20141212
  Serious: No
  Sender: FDA-Public Use
  Company Number: US-GILEAD-2014-0097481

PATIENT
  Age: 34 Year
  Sex: Female
  Weight: 62.13 kg

DRUGS (9)
  1. SOVALDI [Suspect]
     Indication: HEPATITIS C
     Dosage: 400 MG, QD
     Route: 048
     Dates: start: 20140310
  2. RIBAVIRIN [Suspect]
     Indication: HEPATITIS C
     Dosage: 600 MG, QD
  3. PEGASYS [Concomitant]
     Indication: HEPATITIS C
     Dosage: UNK
  4. WELCHOL [Concomitant]
  5. PROMETHAZINE [Concomitant]
     Dosage: UNK
     Route: 048
  6. RIZATRIPTAN [Concomitant]
  7. TRAMADOL [Concomitant]
  8. FLUOXETINE [Concomitant]
  9. BENTYL [Concomitant]
     Dosage: UNK, QID

REACTIONS (5)
  - Irritable bowel syndrome [Unknown]
  - Migraine [Recovering/Resolving]
  - Chills [Unknown]
  - Haemoglobin decreased [Unknown]
  - Diarrhoea [Unknown]
